FAERS Safety Report 20002956 (Version 2)
Quarter: 2021Q4

REPORT INFORMATION
  Report Type: Spontaneous
  Country: JP (occurrence: None)
  Receive Date: 20211027
  Receipt Date: 20211102
  Transmission Date: 20220303
  Serious: Yes (Hospitalization, Other)
  Sender: FDA-Public Use
  Company Number: 2021A783041

PATIENT
  Age: 65 Year
  Sex: Female

DRUGS (7)
  1. NEXIUM [Suspect]
     Active Substance: ESOMEPRAZOLE MAGNESIUM
     Indication: Gastrooesophageal reflux disease
     Route: 048
  2. CRESTOR [Suspect]
     Active Substance: ROSUVASTATIN CALCIUM
     Indication: Dyslipidaemia
     Route: 048
  3. DULOXETINE HYDROCHLORIDE [Concomitant]
     Active Substance: DULOXETINE HYDROCHLORIDE
     Dosage: AFTER BREAKFAST
     Route: 048
  4. HERBALS [Concomitant]
     Active Substance: HERBALS
     Dosage: BEFORE EACH MEAL
     Route: 048
  5. SOFALCONE [Concomitant]
     Active Substance: SOFALCONE
     Dosage: AFTER EACH MEAL
     Route: 048
  6. ELDECALCITOL [Concomitant]
     Active Substance: ELDECALCITOL
     Dosage: AFTER BREAKFAST
     Route: 048
  7. ALOGLIPTIN BENZOATE [Concomitant]
     Active Substance: ALOGLIPTIN BENZOATE
     Dosage: AFTER BREAKFAST
     Route: 048

REACTIONS (2)
  - Adenoma benign [Unknown]
  - Gastrointestinal submucosal tumour [Unknown]
